FAERS Safety Report 19821765 (Version 2)
Quarter: 2021Q4

REPORT INFORMATION
  Report Type: Spontaneous
  Country: US (occurrence: US)
  Receive Date: 20210913
  Receipt Date: 20211013
  Transmission Date: 20220304
  Serious: Yes (Other)
  Sender: FDA-Public Use
  Company Number: US-R-PHARM US LLC-2021RPM00009

PATIENT
  Sex: Female
  Weight: 77.7 kg

DRUGS (1)
  1. IXEMPRA [Suspect]
     Active Substance: IXABEPILONE
     Indication: Breast cancer female
     Dosage: 75 MG (40 MG/M?), EVERY 21 DAYS
     Route: 042
     Dates: start: 20210525, end: 20210727

REACTIONS (2)
  - Breast cancer female [Not Recovered/Not Resolved]
  - Drug ineffective [Not Recovered/Not Resolved]
